FAERS Safety Report 17610645 (Version 1)
Quarter: 2020Q1

REPORT INFORMATION
  Report Type: Spontaneous
  Country: US (occurrence: US)
  Receive Date: 20200331
  Receipt Date: 20200331
  Transmission Date: 20200409
  Serious: Yes (Hospitalization)
  Sender: FDA-Public Use
  Company Number: None

PATIENT
  Age: 78 Year
  Sex: Male

DRUGS (1)
  1. ABIRATERONE. [Suspect]
     Active Substance: ABIRATERONE ACETATE
     Indication: PROSTATE CANCER
     Route: 048
     Dates: start: 20200117, end: 20200319

REACTIONS (6)
  - Fatigue [None]
  - Decreased appetite [None]
  - Weight decreased [None]
  - Dysphagia [None]
  - Blood calcium increased [None]
  - Confusional state [None]

NARRATIVE: CASE EVENT DATE: 20200314
